FAERS Safety Report 18530646 (Version 3)
Quarter: 2020Q4

REPORT INFORMATION
  Report Type: Spontaneous
  Country: BE (occurrence: BE)
  Receive Date: 20201121
  Receipt Date: 20201218
  Transmission Date: 20210114
  Serious: Yes (Other)
  Sender: FDA-Public Use
  Company Number: BE-ROCHE-2718853

PATIENT
  Sex: Male

DRUGS (7)
  1. BURINEX [Concomitant]
     Active Substance: BUMETANIDE
     Dates: start: 20200619, end: 20200619
  2. ATORVASTATINE [Concomitant]
     Active Substance: ATORVASTATIN
     Dates: start: 202003
  3. EZETIMIBE. [Concomitant]
     Active Substance: EZETIMIBE
     Dates: start: 202005
  4. ALECENSA [Suspect]
     Active Substance: ALECTINIB HYDROCHLORIDE
     Indication: LUNG NEOPLASM MALIGNANT
     Dosage: ON 26/JUL/2020 THE DOSE WAS REDUCED TO 2X 300MG A DAY
     Route: 065
     Dates: start: 20200529, end: 20200627
  5. BURINEX [Concomitant]
     Active Substance: BUMETANIDE
     Dates: start: 20200620
  6. ELIQUIS [Concomitant]
     Active Substance: APIXABAN
     Dates: start: 20200518, end: 20200626
  7. BISOPROLOL [Concomitant]
     Active Substance: BISOPROLOL

REACTIONS (4)
  - Pulmonary hypertension [Recovering/Resolving]
  - Pleural effusion [Recovering/Resolving]
  - Renal failure [Recovering/Resolving]
  - Renal impairment [Recovering/Resolving]

NARRATIVE: CASE EVENT DATE: 20200618
